FAERS Safety Report 21356698 (Version 1)
Quarter: 2022Q3

REPORT INFORMATION
  Report Type: Spontaneous
  Country: US (occurrence: US)
  Receive Date: 20220920
  Receipt Date: 20220920
  Transmission Date: 20221027
  Serious: Yes (Other)
  Sender: FDA-Public Use
  Company Number: US-SEATTLE GENETICS-2022SGN08844

PATIENT
  Age: 42 Year
  Sex: Female

DRUGS (1)
  1. TIVDAK [Suspect]
     Active Substance: TISOTUMAB VEDOTIN-TFTV
     Indication: Product used for unknown indication
     Dosage: UNK
     Route: 065
     Dates: start: 20220405

REACTIONS (5)
  - Urinary bladder haematoma [Unknown]
  - Obstructive nephropathy [Unknown]
  - Cystitis haemorrhagic [Unknown]
  - Performance status decreased [Unknown]
  - Hospice care [Unknown]
